FAERS Safety Report 7217362-2 (Version None)
Quarter: 2011Q1

REPORT INFORMATION
  Report Type: 
  Country: None (occurrence: None)
  Receive Date: 20110110
  Receipt Date: 20101230
  Transmission Date: 20110831
  Serious: Yes (Hospitalization, Other)
  Sender: FDA-Public Use
  Company Number: CN-SANOFI-AVENTIS-2010SA078500

PATIENT
  Age: 79 Year
  Sex: Male

DRUGS (3)
  1. INSULIN GLARGINE [Suspect]
     Route: 058
     Dates: start: 20050315
  2. OPTIPEN [Suspect]
  3. BLINDED THERAPY [Suspect]
     Dates: start: 20050315

REACTIONS (1)
  - HAEMATURIA [None]
